FAERS Safety Report 14482505 (Version 1)
Quarter: 2018Q1

REPORT INFORMATION
  Report Type: Spontaneous
  Country: US (occurrence: US)
  Receive Date: 20180202
  Receipt Date: 20180202
  Transmission Date: 20180509
  Serious: Yes (Hospitalization, Other)
  Sender: FDA-Public Use
  Company Number: US-ZYDUS-015705

PATIENT
  Age: 47 Year
  Sex: Female

DRUGS (4)
  1. ALCOHOL. [Concomitant]
     Active Substance: ALCOHOL
     Indication: PRODUCT USED FOR UNKNOWN INDICATION
     Route: 065
  2. BUPROPION/BUPROPION HYDROCHLORIDE [Suspect]
     Active Substance: BUPROPION HYDROCHLORIDE
     Indication: PRODUCT USED FOR UNKNOWN INDICATION
     Route: 048
  3. PARACETAMOL [Concomitant]
     Active Substance: ACETAMINOPHEN
     Indication: PRODUCT USED FOR UNKNOWN INDICATION
     Route: 065
  4. ALPRAZOLAM. [Concomitant]
     Active Substance: ALPRAZOLAM
     Indication: PRODUCT USED FOR UNKNOWN INDICATION
     Route: 065

REACTIONS (20)
  - Generalised tonic-clonic seizure [Recovered/Resolved]
  - Unresponsive to stimuli [Recovered/Resolved]
  - Electroencephalogram abnormal [Recovered/Resolved]
  - Electrocardiogram QRS complex prolonged [Unknown]
  - Sinus tachycardia [Unknown]
  - Hypopnoea [Recovered/Resolved]
  - Intentional overdose [Unknown]
  - Seizure [Recovered/Resolved]
  - Pupil fixed [Recovered/Resolved]
  - Electrocardiogram QT prolonged [Unknown]
  - Status epilepticus [Recovered/Resolved]
  - Areflexia [Recovered/Resolved]
  - Pulseless electrical activity [Recovered/Resolved]
  - Cardiac arrest [Recovered/Resolved]
  - Suicide attempt [Unknown]
  - Lethargy [Recovered/Resolved]
  - Corneal reflex decreased [Recovered/Resolved]
  - Somnolence [Recovered/Resolved]
  - Tachycardia [Unknown]
  - Hypotension [Recovered/Resolved]
